FAERS Safety Report 9277078 (Version 2)
Quarter: 2013Q2

REPORT INFORMATION
  Report Type: Spontaneous
  Country: US (occurrence: US)
  Receive Date: 20130507
  Receipt Date: 20130610
  Transmission Date: 20140414
  Serious: Yes (Hospitalization, Other)
  Sender: FDA-Public Use
  Company Number: US-009507513-1203USA02452

PATIENT
  Sex: Female
  Weight: 61.69 kg

DRUGS (8)
  1. FOSAMAX [Suspect]
     Dosage: 70 MG, QW
     Route: 048
     Dates: start: 2002
  2. FOSAMAX [Suspect]
     Dosage: 35 MG, QW
     Route: 048
     Dates: start: 200810
  3. FOSAMAX PLUS D [Suspect]
     Indication: OSTEOPOROSIS
     Dosage: UNK
     Route: 048
     Dates: start: 20061018, end: 20101009
  4. FOSAMAX [Suspect]
     Indication: OSTEOPOROSIS
     Dosage: 70 MG, QW
     Route: 048
     Dates: start: 201011
  5. ONE-A-DAY ESSENTIAL VITAMINS [Concomitant]
     Dosage: UNK
     Dates: start: 1980
  6. CALCIUM (UNSPECIFIED) [Concomitant]
     Dosage: UNK
     Dates: start: 1980
  7. METHOTREXATE [Concomitant]
     Indication: RHEUMATOID ARTHRITIS
     Dosage: UNK
     Dates: start: 20090101
  8. ALENDRONATE SODIUM [Suspect]
     Dosage: 70 MG, UNK

REACTIONS (53)
  - Femur fracture [Recovered/Resolved]
  - Femur fracture [Unknown]
  - Hip fracture [Unknown]
  - Hip fracture [Unknown]
  - Appendix disorder [Unknown]
  - Anaemia [Unknown]
  - Parathyroid tumour benign [Unknown]
  - Low turnover osteopathy [Unknown]
  - Foot fracture [Unknown]
  - Anxiety [Unknown]
  - Fall [Unknown]
  - Foot fracture [Recovered/Resolved]
  - Carpal tunnel decompression [Unknown]
  - Cyst [Unknown]
  - Increased tendency to bruise [Unknown]
  - Joint effusion [Unknown]
  - Bartholin^s cyst [Unknown]
  - Fall [Unknown]
  - Intervertebral disc degeneration [Unknown]
  - Osteoarthritis [Unknown]
  - Sjogren^s syndrome [Unknown]
  - Fibromyalgia [Unknown]
  - Fall [Unknown]
  - Joint injury [Unknown]
  - Arthropod sting [Unknown]
  - Tenosynovitis [Unknown]
  - Vitamin D deficiency [Unknown]
  - Diabetes mellitus [Unknown]
  - Nephrolithiasis [Unknown]
  - Liver function test abnormal [Unknown]
  - Adverse drug reaction [Unknown]
  - Foot fracture [Unknown]
  - Osteoporosis [Unknown]
  - Kyphosis [Unknown]
  - Hyperparathyroidism [Unknown]
  - Hypercalcaemia [Unknown]
  - Blood parathyroid hormone increased [Unknown]
  - Essential tremor [Unknown]
  - Weight increased [Unknown]
  - Hyperglycaemia [Unknown]
  - Venous insufficiency [Unknown]
  - Chest pain [Unknown]
  - Sinus tachycardia [Unknown]
  - Coronary artery disease [Unknown]
  - Dyspnoea [Unknown]
  - Calcium deficiency [Unknown]
  - Abdominal pain lower [Unknown]
  - Myalgia [Unknown]
  - Headache [Unknown]
  - Constipation [Unknown]
  - Neck pain [Unknown]
  - Muscle spasms [Unknown]
  - Back pain [Unknown]
